FAERS Safety Report 5327311-X (Version None)
Quarter: 2007Q2

REPORT INFORMATION
  Report Type: 
  Country: None (occurrence: None)
  Receive Date: 20070511
  Receipt Date: 20070501
  Transmission Date: 20071010
  Serious: Yes (Hospitalization, Other)
  Sender: FDA-Public Use
  Company Number: 163-21880-06100881

PATIENT
  Age: 80 Year
  Sex: Male

DRUGS (7)
  1. REVLIMID [Suspect]
     Indication: CYTOGENETIC ANALYSIS ABNORMAL
     Dosage: 10 MG, 2 IN 1 D, ORAL
     Route: 048
     Dates: start: 20060916, end: 20061016
  2. REVLIMID [Suspect]
     Indication: MYELODYSPLASTIC SYNDROME
     Dosage: 10 MG, 2 IN 1 D, ORAL
     Route: 048
     Dates: start: 20060916, end: 20061016
  3. DIGOXIN [Concomitant]
  4. LASIX [Concomitant]
  5. COREG [Concomitant]
  6. FOLIC ACID [Concomitant]
  7. VICODIN [Concomitant]

REACTIONS (10)
  - BACK PAIN [None]
  - CARDIAC DISORDER [None]
  - CARDIAC FAILURE CONGESTIVE [None]
  - CHRONIC OBSTRUCTIVE PULMONARY DISEASE [None]
  - CONDITION AGGRAVATED [None]
  - COUGH [None]
  - DYSPNOEA [None]
  - MUSCULOSKELETAL PAIN [None]
  - NO THERAPEUTIC RESPONSE [None]
  - PANCYTOPENIA [None]
